FAERS Safety Report 24342638 (Version 1)
Quarter: 2024Q3

REPORT INFORMATION
  Report Type: Spontaneous
  Country: CN (occurrence: CN)
  Receive Date: 20240920
  Receipt Date: 20240920
  Transmission Date: 20241017
  Serious: Yes (Life-Threatening)
  Sender: MERCK
  Company Number: CN-009507513-2409CHN006457

PATIENT
  Age: 54 Year
  Sex: Male

DRUGS (4)
  1. KEYTRUDA [Suspect]
     Active Substance: PEMBROLIZUMAB
     Indication: Anal cancer
     Dosage: 200 MG D1, ONCE
     Route: 041
     Dates: start: 20240802, end: 20240802
  2. CARBOPLATIN [Suspect]
     Active Substance: CARBOPLATIN
     Indication: Anal cancer
     Dosage: 200 MG D1, ONCE
     Route: 041
     Dates: start: 20240802, end: 20240802
  3. CARBOPLATIN [Suspect]
     Active Substance: CARBOPLATIN
     Dosage: 300 MG D8, ONCE
     Route: 041
     Dates: start: 20240814, end: 20240814
  4. PACLITAXEL [Suspect]
     Active Substance: PACLITAXEL
     Indication: Anal cancer
     Dosage: 180MG D1,D8 (ONCE EVERY 7 DAYS)
     Route: 041
     Dates: start: 20240802, end: 20240814

REACTIONS (3)
  - Platelet count decreased [Not Recovered/Not Resolved]
  - White blood cell count decreased [Unknown]
  - Neutrophil count decreased [Recovering/Resolving]

NARRATIVE: CASE EVENT DATE: 20240903
